FAERS Safety Report 14220572 (Version 2)
Quarter: 2018Q1

REPORT INFORMATION
  Report Type: Report from Study
  Country: CO (occurrence: CO)
  Receive Date: 20171124
  Receipt Date: 20180208
  Transmission Date: 20180508
  Serious: Yes (Hospitalization, Other)
  Sender: FDA-Public Use
  Company Number: CO-AMGEN-COLSL2017174737

PATIENT
  Age: 49 Year
  Sex: Female

DRUGS (1)
  1. MIMPARA [Suspect]
     Active Substance: CINACALCET HYDROCHLORIDE
     Indication: HYPERPARATHYROIDISM SECONDARY
     Dosage: 30 MG, QD
     Route: 048
     Dates: start: 20160701, end: 20171025

REACTIONS (5)
  - Limb injury [Unknown]
  - Discomfort [Not Recovered/Not Resolved]
  - Thyroid operation [Not Recovered/Not Resolved]
  - Abdominal cavity drainage [Unknown]
  - Pain [Not Recovered/Not Resolved]
